FAERS Safety Report 7275019-6 (Version None)
Quarter: 2011Q1

REPORT INFORMATION
  Report Type: 
  Country: None (occurrence: None)
  Receive Date: 20110204
  Receipt Date: 20110131
  Transmission Date: 20110831
  Serious: Yes (Death)
  Sender: FDA-Public Use
  Company Number: CN-SANOFI-AVENTIS-2011SA005825

PATIENT

DRUGS (1)
  1. CLOPIDOGREL BISULFATE [Suspect]
     Dosage: THERAPY STATUS AT THE TIME OF PATIENT'S DEATH WAS NOT SPECIFIED.
     Route: 065

REACTIONS (1)
  - PANCYTOPENIA [None]
